FAERS Safety Report 25223126 (Version 1)
Quarter: 2025Q2

REPORT INFORMATION
  Report Type: Spontaneous
  Country: PL (occurrence: PL)
  Receive Date: 20250422
  Receipt Date: 20250422
  Transmission Date: 20250717
  Serious: Yes (Death, Other)
  Sender: FRESENIUS KABI
  Company Number: PL-AMGEN-POLSP2025060002

PATIENT
  Age: 59 Year
  Sex: Male

DRUGS (17)
  1. IRINOTECAN HYDROCHLORIDE [Suspect]
     Active Substance: IRINOTECAN HYDROCHLORIDE
     Indication: Adenocarcinoma of colon
     Dates: start: 20210615, end: 202204
  2. IRINOTECAN HYDROCHLORIDE [Suspect]
     Active Substance: IRINOTECAN HYDROCHLORIDE
     Dates: start: 20220412
  3. IRINOTECAN HYDROCHLORIDE [Suspect]
     Active Substance: IRINOTECAN HYDROCHLORIDE
     Dates: start: 20220719
  4. IRINOTECAN HYDROCHLORIDE [Suspect]
     Active Substance: IRINOTECAN HYDROCHLORIDE
     Dates: start: 202305, end: 202308
  5. OXALIPLATIN [Suspect]
     Active Substance: OXALIPLATIN
     Indication: Adenocarcinoma of colon
  6. VECTIBIX [Suspect]
     Active Substance: PANITUMUMAB
     Indication: Adenocarcinoma of colon
     Dates: start: 20210615, end: 202204
  7. LEUCOVORIN [Suspect]
     Active Substance: LEUCOVORIN\LEUCOVORIN CALCIUM
     Indication: Adenocarcinoma of colon
     Dates: start: 20210615, end: 202204
  8. LEUCOVORIN [Suspect]
     Active Substance: LEUCOVORIN\LEUCOVORIN CALCIUM
     Dates: start: 20220412
  9. LEUCOVORIN [Suspect]
     Active Substance: LEUCOVORIN\LEUCOVORIN CALCIUM
     Dates: start: 20220719
  10. LEUCOVORIN [Suspect]
     Active Substance: LEUCOVORIN\LEUCOVORIN CALCIUM
     Dates: start: 202305, end: 202308
  11. FLUOROURACIL SODIUM [Suspect]
     Active Substance: FLUOROURACIL SODIUM
     Indication: Adenocarcinoma of colon
     Dates: start: 20210615, end: 202204
  12. FLUOROURACIL SODIUM [Suspect]
     Active Substance: FLUOROURACIL SODIUM
     Dates: start: 20220412
  13. FLUOROURACIL SODIUM [Suspect]
     Active Substance: FLUOROURACIL SODIUM
     Dates: start: 20220719
  14. FLUOROURACIL SODIUM [Suspect]
     Active Substance: FLUOROURACIL SODIUM
     Dates: start: 202305, end: 202308
  15. CAPECITABINE [Concomitant]
     Active Substance: CAPECITABINE
     Indication: Product used for unknown indication
     Dates: start: 20230101
  16. Tipiracil;Trifluridine [TIPIRACIL, TRIFLURIDINE] [Concomitant]
     Indication: Product used for unknown indication
     Dates: start: 202211, end: 202301
  17. Fucoidan [FUCOIDAN] [Concomitant]
     Indication: Product used for unknown indication
     Dates: start: 202309, end: 202401

REACTIONS (8)
  - Death [Fatal]
  - Neutropenia [Unknown]
  - Hypersensitivity [Unknown]
  - Hypomagnesaemia [Unknown]
  - Rash [Unknown]
  - Pulmonary mass [Unknown]
  - Hepatic lesion [Unknown]
  - General physical health deterioration [Unknown]

NARRATIVE: CASE EVENT DATE: 20220101
